FAERS Safety Report 19236943 (Version 1)
Quarter: 2021Q2

REPORT INFORMATION
  Report Type: Spontaneous
  Country: GB (occurrence: GB)
  Receive Date: 20210510
  Receipt Date: 20210510
  Transmission Date: 20210717
  Serious: Yes (Other)
  Sender: FDA-Public Use
  Company Number: GB-GLAXOSMITHKLINE-GB2021099084

PATIENT
  Sex: Male

DRUGS (2)
  1. TOZINAMERAN. [Interacting]
     Active Substance: TOZINAMERAN
     Indication: COVID-19 IMMUNISATION
     Dosage: DOSE 2, SINGLE DOSE, TOTAL
     Route: 065
     Dates: start: 20210408, end: 20210408
  2. LAMOTRIGINE. [Suspect]
     Active Substance: LAMOTRIGINE
     Indication: EPILEPSY
     Dosage: UNK
     Route: 065

REACTIONS (5)
  - Seizure [Unknown]
  - Cluster headache [Unknown]
  - Epilepsy [Unknown]
  - Tongue biting [Unknown]
  - Drug interaction [Unknown]

NARRATIVE: CASE EVENT DATE: 202104
